FAERS Safety Report 7151588-1 (Version None)
Quarter: 2010Q4

REPORT INFORMATION
  Report Type: 
  Country: None (occurrence: None)
  Receive Date: 20101210
  Receipt Date: 20101202
  Transmission Date: 20110411
  Serious: Yes (Other)
  Sender: FDA-Public Use
  Company Number: US-US-EMD SERONO, INC.-7030387

PATIENT
  Sex: Female
  Weight: 86 kg

DRUGS (2)
  1. REBIF [Suspect]
     Indication: MULTIPLE SCLEROSIS
     Route: 058
     Dates: start: 20091201
  2. METFORMIN [Concomitant]
     Indication: DIABETES MELLITUS

REACTIONS (1)
  - PNEUMONIA [None]
